FAERS Safety Report 12782737 (Version 5)
Quarter: 2018Q3

REPORT INFORMATION
  Report Type: Spontaneous
  Country: US (occurrence: US)
  Receive Date: 20160927
  Receipt Date: 20180830
  Transmission Date: 20181010
  Serious: No
  Sender: FDA-Public Use
  Company Number: US-ACTELION-A-US2016-142388

PATIENT
  Age: 32 Year
  Sex: Female
  Weight: 60.77 kg

DRUGS (5)
  1. REMODULIN [Concomitant]
     Active Substance: TREPROSTINIL
     Dosage: UNK
     Route: 042
  2. ADCIRCA [Concomitant]
     Active Substance: TADALAFIL
  3. REMODULIN [Concomitant]
     Active Substance: TREPROSTINIL
     Dosage: UNK
     Route: 058
  4. XARELTO [Concomitant]
     Active Substance: RIVAROXABAN
  5. OPSUMIT [Suspect]
     Active Substance: MACITENTAN
     Indication: PULMONARY ARTERIAL HYPERTENSION
     Dosage: 10 MG, QD
     Route: 048
     Dates: start: 20140710

REACTIONS (6)
  - Catheter site related reaction [Unknown]
  - Catheter site pain [Unknown]
  - Groin pain [Unknown]
  - Device leakage [Unknown]
  - Catheter site swelling [Unknown]
  - Injection site paraesthesia [Unknown]
